FAERS Safety Report 4811550-8 (Version None)
Quarter: 2005Q4

REPORT INFORMATION
  Report Type: 
  Country: None (occurrence: None)
  Receive Date: 20051025
  Receipt Date: 20051012
  Transmission Date: 20060501
  Serious: Yes (Hospitalization)
  Sender: FDA-Public Use
  Company Number: 2005141297

PATIENT
  Age: 57 Year
  Sex: Male
  Weight: 90 kg

DRUGS (6)
  1. DIFLUCAN [Suspect]
     Indication: CANDIDIASIS
     Dosage: 200 MG DAILY, INTRAVENOUS
     Route: 042
     Dates: start: 20050711, end: 20050720
  2. DIFLUCAN [Suspect]
     Indication: ORAL INFECTION
     Dosage: 200 MG DAILY, INTRAVENOUS
     Route: 042
     Dates: start: 20050711, end: 20050720
  3. BISOPROLOL (BISOPROLOL) [Concomitant]
  4. ALLOPURINOL [Concomitant]
  5. AMITRIPTYLINE HCL [Concomitant]
  6. ESOMEPRAZOLE (ESOMEPRAZOLE) [Concomitant]

REACTIONS (1)
  - RASH [None]
